FAERS Safety Report 9057248 (Version 1)
Quarter: 2013Q1

REPORT INFORMATION
  Report Type: Spontaneous
  Country: US (occurrence: US)
  Receive Date: 20130131
  Receipt Date: 20130131
  Transmission Date: 20140127
  Serious: Yes (Death, Hospitalization)
  Sender: FDA-Public Use
  Company Number: US-GLAXOSMITHKLINE-B0698263A

PATIENT
  Age: 60 Year
  Sex: Female

DRUGS (1)
  1. AVANDIA [Suspect]
     Indication: DIABETES MELLITUS
     Dosage: 2MG TWICE PER DAY
     Route: 048
     Dates: start: 200405, end: 20060501

REACTIONS (5)
  - Renal failure [Fatal]
  - Myocardial infarction [Unknown]
  - Angina unstable [Unknown]
  - Sick sinus syndrome [Unknown]
  - Cardiac failure congestive [Unknown]
